FAERS Safety Report 8464171-2 (Version None)
Quarter: 2012Q2

REPORT INFORMATION
  Report Type: 
  Country: None (occurrence: None)
  Receive Date: 20120625
  Receipt Date: 20120622
  Transmission Date: 20120825
  Serious: No
  Sender: FDA-Public Use
  Company Number: US-PFIZER INC-2012132361

PATIENT
  Sex: Male
  Weight: 106 kg

DRUGS (16)
  1. GLYBURIDE [Concomitant]
     Indication: DIABETES MELLITUS
     Dosage: 2.5 MG, 2X/DAY
  2. CELEXA [Concomitant]
     Dosage: 20 MG, 1X/DAY
  3. NICOTROL [Suspect]
     Indication: TOBACCO ABUSE
     Dosage: 10 MG, AS NEEDED
     Route: 055
     Dates: start: 20110629
  4. NICOTROL [Suspect]
     Dosage: UNK
     Dates: start: 20120429
  5. GLYBURIDE [Concomitant]
     Dosage: 2.5, 1X/DAY
  6. MUCINEX [Concomitant]
     Dosage: 30/600 TWICE A DAY, AS NEEDED
  7. FLEXERIL [Concomitant]
     Dosage: 10 MG, 2X/DAY, AS NEEDED
  8. METFORMIN [Concomitant]
     Indication: DIABETES MELLITUS
     Dosage: 500 MG 2 AM, 1 AS NEEDED, 2 PM
  9. DIOVAN [Concomitant]
     Indication: HYPERTENSION
     Dosage: 160 MG, DAILY
  10. XANAX [Concomitant]
     Dosage: 0.25 TWICE A DAY
  11. AMOXICILLIN [Concomitant]
     Dosage: 500 THREE TIMES A DAY FOR 10 DAYS
  12. ASPIRIN [Concomitant]
     Indication: BLOOD DISORDER
     Dosage: 325 MG, DAILY
  13. ZICAN [Concomitant]
     Indication: SINUS DISORDER
     Dosage: UNK
  14. TRAMADOL [Concomitant]
     Indication: LIMB INJURY
     Dosage: 50 MG, DAILY AS NEEDED
  15. BENADRYL [Concomitant]
     Indication: SINUS DISORDER
     Dosage: 25 MG, 2X/DAY
  16. ALLEGRA-D 12 HOUR [Concomitant]
     Indication: SINUS DISORDER
     Dosage: UNK

REACTIONS (10)
  - FORMICATION [None]
  - DEPRESSION [None]
  - SINUS DISORDER [None]
  - HEADACHE [None]
  - DISTURBANCE IN ATTENTION [None]
  - SLEEP DISORDER [None]
  - ANXIETY [None]
  - FEELING ABNORMAL [None]
  - HEARING IMPAIRED [None]
  - GLYCOSYLATED HAEMOGLOBIN INCREASED [None]
